FAERS Safety Report 5727335-4 (Version None)
Quarter: 2008Q2

REPORT INFORMATION
  Report Type: 
  Country: None (occurrence: None)
  Receive Date: 20080505
  Receipt Date: 20080424
  Transmission Date: 20081010
  Serious: Yes (Other)
  Sender: FDA-Public Use
  Company Number: US-ROCHE-553193

PATIENT
  Sex: Male
  Weight: 74.8 kg

DRUGS (4)
  1. XELODA [Suspect]
     Dosage: DOSAGE RECEIVED DURING THE SUMMER.
     Route: 048
     Dates: start: 20070101
  2. XELODA [Suspect]
     Route: 048
     Dates: start: 20080101
  3. XELODA [Suspect]
     Dosage: TAKEN FOR 2 WEEKS OUT OF 3 WEEKS.
     Route: 048
     Dates: start: 20080306, end: 20080320
  4. XELODA [Suspect]
     Dosage: TAKEN FOR 2 WEEKS OFF AND 2 WEEKS ON
     Route: 048

REACTIONS (14)
  - ABDOMINAL PAIN [None]
  - AGEUSIA [None]
  - CHEILITIS [None]
  - DIARRHOEA [None]
  - EYE DISORDER [None]
  - GASTRIC DISORDER [None]
  - HEPATIC LESION [None]
  - PENILE EXFOLIATION [None]
  - RASH [None]
  - SKIN DISCOLOURATION [None]
  - SKIN DISORDER [None]
  - SKIN EXFOLIATION [None]
  - SKIN HAEMORRHAGE [None]
  - TENDERNESS [None]
